FAERS Safety Report 25019128 (Version 1)
Quarter: 2025Q1

REPORT INFORMATION
  Report Type: Spontaneous
  Country: PT (occurrence: PT)
  Receive Date: 20250227
  Receipt Date: 20250227
  Transmission Date: 20250409
  Serious: Yes (Other)
  Sender: PFIZER
  Company Number: None

PATIENT
  Age: 34 Year
  Sex: Female

DRUGS (4)
  1. CYTOTEC [Suspect]
     Active Substance: MISOPROSTOL
     Indication: Uterine atony
     Route: 048
     Dates: start: 20220825, end: 20220825
  2. OXYTOCIN [Concomitant]
     Active Substance: OXYTOCIN
     Indication: Uterine atony
  3. FOLIC ACID [Concomitant]
     Active Substance: FOLIC ACID
  4. IODINE [Concomitant]
     Active Substance: IODINE

REACTIONS (4)
  - Tremor [Recovered/Resolved]
  - Hypertension [Recovered/Resolved]
  - Rash [Recovered/Resolved]
  - Off label use [Unknown]

NARRATIVE: CASE EVENT DATE: 20220825
